FAERS Safety Report 21531077 (Version 2)
Quarter: 2023Q1

REPORT INFORMATION
  Report Type: Spontaneous
  Country: US (occurrence: US)
  Receive Date: 20221031
  Receipt Date: 20230202
  Transmission Date: 20230417
  Serious: No
  Sender: FDA-Public Use
  Company Number: US-SA-SAC20221028001205

PATIENT
  Sex: Male

DRUGS (1)
  1. DUPIXENT [Suspect]
     Active Substance: DUPILUMAB
     Indication: Eczema
     Dosage: 300 MG, FREQUENCY: OTHER
     Route: 058

REACTIONS (4)
  - Headache [Unknown]
  - Injection site pain [Unknown]
  - Therapeutic product effect incomplete [Unknown]
  - Product dose omission in error [Unknown]
